FAERS Safety Report 6305003-8 (Version None)
Quarter: 2009Q3

REPORT INFORMATION
  Report Type: 
  Country: None (occurrence: None)
  Receive Date: 20090811
  Receipt Date: 20090730
  Transmission Date: 20100115
  Serious: Yes (Hospitalization, Other)
  Sender: FDA-Public Use
  Company Number: US-ELI_LILLY_AND_COMPANY-US200908000150

PATIENT
  Age: 30 Month
  Sex: Female

DRUGS (1)
  1. CECLOR [Suspect]
     Indication: SINUSITIS
     Dates: start: 19910101

REACTIONS (6)
  - ABASIA [None]
  - ARTHROPATHY [None]
  - ERYTHEMA [None]
  - JOINT SWELLING [None]
  - RASH [None]
  - SERUM SICKNESS [None]
